FAERS Safety Report 25185816 (Version 1)
Quarter: 2025Q2

REPORT INFORMATION
  Report Type: Spontaneous
  Country: IT (occurrence: IT)
  Receive Date: 20250410
  Receipt Date: 20250410
  Transmission Date: 20250717
  Serious: Yes (Other)
  Sender: MYLAN
  Company Number: IT-002147023-NVSC2025IT048859

PATIENT
  Age: 24 Year
  Sex: Male

DRUGS (20)
  1. PREDNISONE [Suspect]
     Active Substance: PREDNISONE
     Indication: PSTPIP1-associated myeloid-related proteinaemia inflammatory syndrome
  2. PREDNISONE [Suspect]
     Active Substance: PREDNISONE
     Route: 065
  3. PREDNISONE [Suspect]
     Active Substance: PREDNISONE
     Route: 065
  4. PREDNISONE [Suspect]
     Active Substance: PREDNISONE
  5. TACROLIMUS [Suspect]
     Active Substance: TACROLIMUS
     Indication: PSTPIP1-associated myeloid-related proteinaemia inflammatory syndrome
  6. TACROLIMUS [Suspect]
     Active Substance: TACROLIMUS
     Route: 065
  7. TACROLIMUS [Suspect]
     Active Substance: TACROLIMUS
     Route: 065
  8. TACROLIMUS [Suspect]
     Active Substance: TACROLIMUS
  9. CANAKINUMAB [Suspect]
     Active Substance: CANAKINUMAB
     Indication: PSTPIP1-associated myeloid-related proteinaemia inflammatory syndrome
  10. CANAKINUMAB [Suspect]
     Active Substance: CANAKINUMAB
  11. CANAKINUMAB [Suspect]
     Active Substance: CANAKINUMAB
     Route: 065
  12. CANAKINUMAB [Suspect]
     Active Substance: CANAKINUMAB
     Route: 065
  13. CANAKINUMAB [Suspect]
     Active Substance: CANAKINUMAB
  14. CANAKINUMAB [Suspect]
     Active Substance: CANAKINUMAB
  15. CANAKINUMAB [Suspect]
     Active Substance: CANAKINUMAB
     Route: 065
  16. CANAKINUMAB [Suspect]
     Active Substance: CANAKINUMAB
     Route: 065
  17. CANAKINUMAB [Suspect]
     Active Substance: CANAKINUMAB
     Dosage: 150 MILLIGRAM, MONTHLY (QMO)
  18. CANAKINUMAB [Suspect]
     Active Substance: CANAKINUMAB
     Dosage: 150 MILLIGRAM, MONTHLY (QMO)
     Route: 065
  19. CANAKINUMAB [Suspect]
     Active Substance: CANAKINUMAB
     Dosage: 150 MILLIGRAM, MONTHLY (QMO)
  20. CANAKINUMAB [Suspect]
     Active Substance: CANAKINUMAB
     Dosage: 150 MILLIGRAM, MONTHLY (QMO)
     Route: 065

REACTIONS (7)
  - Kidney fibrosis [Recovering/Resolving]
  - Focal segmental glomerulosclerosis [Recovering/Resolving]
  - Proteinuria [Recovering/Resolving]
  - Haematuria [Recovering/Resolving]
  - Hypoalbuminaemia [Recovering/Resolving]
  - Hyperuricaemia [Recovering/Resolving]
  - Off label use [Unknown]
